FAERS Safety Report 19453817 (Version 1)
Quarter: 2021Q2

REPORT INFORMATION
  Report Type: Spontaneous
  Country: US (occurrence: US)
  Receive Date: 20210623
  Receipt Date: 20210623
  Transmission Date: 20210717
  Serious: Yes (Hospitalization, Other)
  Sender: FDA-Public Use
  Company Number: US-TAKEDA-2021TUS038889

PATIENT

DRUGS (1)
  1. ENTYVIO [Suspect]
     Active Substance: VEDOLIZUMAB
     Indication: AUTOIMMUNE COLITIS
     Dosage: 300 MILLIGRAM
     Route: 042

REACTIONS (4)
  - Parkinson^s disease [Unknown]
  - Fall [Unknown]
  - Renal cell carcinoma [Unknown]
  - Product use in unapproved indication [Unknown]
